FAERS Safety Report 9150449 (Version 4)
Quarter: 2013Q3

REPORT INFORMATION
  Report Type: Spontaneous
  Country: US (occurrence: None)
  Receive Date: 20130227
  Receipt Date: 20130828
  Transmission Date: 20140515
  Serious: Yes (Hospitalization)
  Sender: FDA-Public Use
  Company Number: 2013US001159

PATIENT
  Age: 59 Year
  Sex: Female
  Weight: 73 kg

DRUGS (15)
  1. ICLUSIG [Suspect]
     Indication: CHRONIC MYELOID LEUKAEMIA
     Route: 048
     Dates: start: 20130105, end: 201301
  2. POTASSIUM (POTASSIUM) [Concomitant]
  3. VITAMIN D (VITAMIN D) [Concomitant]
  4. CARDIZEM (DILTIAZEM) [Concomitant]
  5. ALBUTEROL (ALBUTEROL) [Concomitant]
  6. ADVAIR (FLUTICASONE PROPIONATE, SALMETEROL XINAFOATE) [Concomitant]
  7. SPIRIVA (TIOTROPIUM BROMIDE) [Concomitant]
  8. ASPIRIN (ASPIRIN) [Concomitant]
  9. SYNTHROID (LEVOTHYROXINE SODIUM) [Concomitant]
  10. PERCOCET [Concomitant]
  11. TUMS (CALCIUM CARBONATE) [Concomitant]
  12. ACYCLOVIR (ACICLOVIR) [Concomitant]
  13. PREDNISONE (PREDNISONE) [Concomitant]
  14. ALLOPURINOL [Concomitant]
  15. COLCHICINE (COLCHICINE) [Concomitant]

REACTIONS (16)
  - Gout [None]
  - Heart rate increased [None]
  - Sepsis [None]
  - Atrial fibrillation [None]
  - Staphylococcus test positive [None]
  - Arrhythmia [None]
  - Decreased appetite [None]
  - Weight decreased [None]
  - Rash pruritic [None]
  - Dry mouth [None]
  - Diarrhoea [None]
  - Fatigue [None]
  - Weight bearing difficulty [None]
  - Abasia [None]
  - Haemoglobin decreased [None]
  - Platelet count decreased [None]
